FAERS Safety Report 8949648 (Version 1)
Quarter: 2012Q4

REPORT INFORMATION
  Report Type: 
  Country: US (occurrence: US)
  Receive Date: 20121206
  Receipt Date: 20121206
  Transmission Date: 20130627
  Serious: No
  Sender: FDA-Public Use
  Company Number: US-ASTRAZENECA-2012SE87931

PATIENT
  Age: 39 Year
  Sex: Female
  Weight: 59 kg

DRUGS (3)
  1. ZESTORETIC [Suspect]
     Indication: HYPERTENSION
     Dosage: GENERIC 10/12.5 MG
     Route: 048
     Dates: start: 1989, end: 2006
  2. ZESTORETIC [Suspect]
     Indication: HYPERTENSION
     Dosage: 10/12.5 MG
     Route: 048
     Dates: start: 2006, end: 2008
  3. ZESTORETIC [Suspect]
     Indication: HYPERTENSION
     Dosage: 10/12.5 MG
     Route: 048
     Dates: start: 2008

REACTIONS (10)
  - Pregnancy [Recovered/Resolved]
  - Blood pressure abnormal [Unknown]
  - Feeling abnormal [Unknown]
  - Sluggishness [Unknown]
  - Blood pressure systolic decreased [Unknown]
  - Nausea [Unknown]
  - Headache [Unknown]
  - Drug ineffective [Unknown]
  - Drug dose omission [Unknown]
  - Intentional drug misuse [Unknown]
